FAERS Safety Report 8809284 (Version 1)
Quarter: 2012Q4

REPORT INFORMATION
  Report Type: Spontaneous
  Country: US (occurrence: None)
  Receive Date: 20120924
  Receipt Date: 20120924
  Transmission Date: 20130627
  Serious: Yes (Disabling)
  Sender: FDA-Public Use
  Company Number: None

PATIENT
  Sex: Female
  Weight: 47.63 kg

DRUGS (1)
  1. CIPROFLOXACIN [Suspect]
     Indication: UTI
     Dosage: 1 TABLET BY MOUTH TWICE A DAY
     Route: 048
     Dates: start: 20120810

REACTIONS (4)
  - Groin pain [None]
  - Peroneal nerve palsy [None]
  - Paraesthesia [None]
  - Gait disturbance [None]
